FAERS Safety Report 8866900 (Version 1)
Quarter: 2012Q4

REPORT INFORMATION
  Report Type: 
  Country: US (occurrence: US)
  Receive Date: 20121025
  Receipt Date: 20121025
  Transmission Date: 20130627
  Serious: No
  Sender: FDA-Public Use
  Company Number: US-AMGEN-USASP2012013892

PATIENT
  Age: 66 Year
  Sex: Male
  Weight: 81.63 kg

DRUGS (7)
  1. ENBREL [Suspect]
     Indication: PRODUCT USED FOR UNKNOWN INDICATION
     Dosage: 50 mg, qwk
     Route: 058
  2. METHADONE [Concomitant]
     Dosage: 10 mg, UNK
  3. LORAZEPAM [Concomitant]
     Dosage: 0.5 mg, UNK
  4. NEXIUM                             /01479302/ [Concomitant]
     Dosage: 20 mg, UNK
  5. LEXAPRO [Concomitant]
     Dosage: 5 mg, UNK
  6. NAMENDA [Concomitant]
     Dosage: 5 mg, UNK
  7. PROVIGIL [Concomitant]
     Dosage: 100 mg, UNK

REACTIONS (4)
  - Therapeutic response decreased [Unknown]
  - Pain [Unknown]
  - Activities of daily living impaired [Unknown]
  - Herpes zoster [Unknown]
